FAERS Safety Report 15426580 (Version 2)
Quarter: 2020Q3

REPORT INFORMATION
  Report Type: Report from Study
  Country: US (occurrence: US)
  Receive Date: 20180925
  Receipt Date: 20200731
  Transmission Date: 20201102
  Serious: Yes (Hospitalization, Other)
  Sender: FDA-Public Use
  Company Number: US-SA-2017SA230317

PATIENT

DRUGS (2)
  1. ALEMTUZUMAB [Suspect]
     Active Substance: ALEMTUZUMAB
     Indication: MULTIPLE SCLEROSIS
     Dosage: 12 MG,QD
     Route: 041
     Dates: start: 20170828, end: 20170831
  2. ALEMTUZUMAB [Suspect]
     Active Substance: ALEMTUZUMAB
     Dosage: 12 MG,QD
     Route: 041
     Dates: start: 20170902, end: 20170902

REACTIONS (6)
  - Fall [Recovered/Resolved]
  - Contusion [Recovering/Resolving]
  - Pneumonia [Recovering/Resolving]
  - Skin abrasion [Unknown]
  - Off label use [Unknown]
  - Lung neoplasm malignant [Unknown]

NARRATIVE: CASE EVENT DATE: 20171109
